FAERS Safety Report 8574973 (Version 2)
Quarter: 2014Q1

REPORT INFORMATION
  Report Type: Spontaneous
  Country: US (occurrence: None)
  Receive Date: 20120323
  Receipt Date: 20130305
  Transmission Date: 20141002
  Serious: Yes (Disabling, Other)
  Sender: FDA-Public Use
  Company Number: 163-21880-11080271

PATIENT
  Age: 72 Year
  Sex: Male

DRUGS (12)
  1. REVLIMID [Suspect]
     Indication: MYELODYSPLASTIC SYNDROME
     Dosage: 10 MG, DAILY X 28 DAYS, PO
     Route: 048
     Dates: start: 20101031, end: 20110707
  2. PRAVASTATIN [Concomitant]
  3. ASA (ACETYLSALICYLIC ACID) [Concomitant]
  4. METOPROLOL [Concomitant]
  5. METFORMIN HYDROCHLORIDE [Concomitant]
  6. JANUVIA [Concomitant]
  7. GLIPIZIDE [Concomitant]
  8. LOPRESSOR [Concomitant]
  9. GLUCOTROL XL [Concomitant]
  10. DIAVAN [Concomitant]
  11. GLUCOPHAGE XR (METFORMIN HYDROCHLORIDE) [Concomitant]
  12. PRAVACHOL [Concomitant]

REACTIONS (3)
  - Myelodysplastic syndrome [None]
  - Disease progression [None]
  - Bone marrow failure [None]
